FAERS Safety Report 21240444 (Version 1)
Quarter: 2022Q3

REPORT INFORMATION
  Report Type: Spontaneous
  Country: VN (occurrence: VN)
  Receive Date: 20220822
  Receipt Date: 20220822
  Transmission Date: 20221027
  Serious: Yes (Hospitalization)
  Sender: FDA-Public Use
  Company Number: VN-ALVOGEN-2022-ALVOGEN-120774

PATIENT
  Age: 61 Year
  Sex: Female

DRUGS (1)
  1. DOXORUBICIN [Suspect]
     Active Substance: DOXORUBICIN
     Indication: Hepatic angiosarcoma
     Dosage: ONCE EVERY 21 DAYS
     Route: 042

REACTIONS (10)
  - Gamma-glutamyltransferase increased [Unknown]
  - Fatigue [Unknown]
  - Decreased appetite [Unknown]
  - Mouth ulceration [Unknown]
  - Mucosal ulceration [Unknown]
  - Red blood cell count decreased [Unknown]
  - Platelet count decreased [Unknown]
  - White blood cell count decreased [Unknown]
  - Protein total increased [Unknown]
  - Blood albumin decreased [Unknown]
